FAERS Safety Report 10763268 (Version 1)
Quarter: 2015Q1

REPORT INFORMATION
  Report Type: Spontaneous
  Country: JP (occurrence: JP)
  Receive Date: 20150204
  Receipt Date: 20150204
  Transmission Date: 20150721
  Serious: Yes (Hospitalization, Other)
  Sender: FDA-Public Use
  Company Number: JP-NOVOPROD-420804

PATIENT
  Age: 53 Year
  Sex: Female
  Weight: 60.35 kg

DRUGS (17)
  1. VITAMEDIN                          /00176001/ [Concomitant]
     Dosage: 3 CAPS
     Route: 048
     Dates: end: 20140827
  2. EPALRESTAT [Concomitant]
     Active Substance: EPALRESTAT
     Indication: TYPE 2 DIABETES MELLITUS
     Dosage: 150 MG
     Route: 048
     Dates: end: 20140827
  3. METGLUCO [Suspect]
     Active Substance: METFORMIN HYDROCHLORIDE
     Indication: TYPE 2 DIABETES MELLITUS
     Dosage: 1500 MG, QD
     Route: 048
     Dates: end: 20140827
  4. NEUER [Concomitant]
     Active Substance: CETRAXATE HYDROCHLORIDE
     Dosage: 600 MG
     Route: 048
     Dates: end: 20140827
  5. PICORULA [Concomitant]
     Dosage: 10 MG
     Route: 048
     Dates: end: 20140827
  6. VECTAN [Concomitant]
     Indication: TYPE 2 DIABETES MELLITUS
     Dosage: 100 MG
     Route: 048
  7. GLIMEPIRIDE. [Suspect]
     Active Substance: GLIMEPIRIDE
     Indication: TYPE 2 DIABETES MELLITUS
     Dosage: 0.5 MG, QD
     Route: 048
     Dates: end: 20140827
  8. CONTOL                             /00011501/ [Concomitant]
     Indication: DEPRESSION
     Dosage: 10 MG
     Route: 048
     Dates: end: 20140827
  9. SENNOSIDE                          /00571901/ [Concomitant]
     Active Substance: SENNOSIDES A AND B
     Dosage: 48 MG
     Route: 048
     Dates: end: 20140827
  10. CINAL [Concomitant]
     Active Substance: ASCORBIC ACID\CALCIUM PANTOTHENATE
     Dosage: 2 TAB
     Route: 048
     Dates: end: 20140827
  11. LAMICTAL [Concomitant]
     Active Substance: LAMOTRIGINE
     Indication: DEPRESSION
     Dosage: 50 MG
     Route: 048
     Dates: end: 20140827
  12. METHYCOOL [Concomitant]
     Active Substance: METHYLCOBALAMIN
     Indication: TYPE 2 DIABETES MELLITUS
     Dosage: 1500 MICROGRAM
     Route: 048
     Dates: end: 20140827
  13. LUVOX [Concomitant]
     Active Substance: FLUVOXAMINE MALEATE
     Indication: DEPRESSION
     Dosage: 50 MG
     Route: 048
     Dates: end: 20140827
  14. WAKADENIN [Concomitant]
     Dosage: 20 MG
     Route: 048
     Dates: end: 20140827
  15. VICTOZA [Suspect]
     Active Substance: LIRAGLUTIDE
     Indication: TYPE 2 DIABETES MELLITUS
     Dosage: 0.9 MG, QD
     Route: 058
     Dates: end: 20140827
  16. LYRICA [Concomitant]
     Active Substance: PREGABALIN
     Indication: TYPE 2 DIABETES MELLITUS
     Dosage: 75 MG, QD
     Route: 048
     Dates: end: 20140827
  17. FLUNITRAZEPAM [Concomitant]
     Active Substance: FLUNITRAZEPAM
     Indication: DEPRESSION
     Dosage: 3 MG
     Route: 048
     Dates: end: 20140827

REACTIONS (4)
  - Vomiting [Recovered/Resolved]
  - Hypoglycaemia [Recovered/Resolved]
  - Suicidal ideation [Recovered/Resolved]
  - Intentional overdose [Recovered/Resolved]

NARRATIVE: CASE EVENT DATE: 20140827
